FAERS Safety Report 5588950-4 (Version None)
Quarter: 2007Q4

REPORT INFORMATION
  Report Type: 
  Country: None (occurrence: None)
  Receive Date: 20071211
  Receipt Date: 20071108
  Transmission Date: 20080405
  Serious: No
  Sender: FDA-Public Use
  Company Number: 002#2#2007-00308

PATIENT
  Sex: Male

DRUGS (1)
  1. NEUPRO [Suspect]

REACTIONS (4)
  - FATIGUE [None]
  - HEART RATE INCREASED [None]
  - HOT FLUSH [None]
  - VENTRICULAR EXTRASYSTOLES [None]
